FAERS Safety Report 24561731 (Version 1)
Quarter: 2024Q4

REPORT INFORMATION
  Report Type: Report from Study
  Country: NL (occurrence: NL)
  Receive Date: 20241029
  Receipt Date: 20241029
  Transmission Date: 20250115
  Serious: Yes (Death, Other)
  Sender: VERITY PHARMACEUTICALS INC.
  Company Number: NL-VER-202400073

PATIENT
  Sex: Male

DRUGS (3)
  1. TRIPTORELIN PAMOATE [Suspect]
     Active Substance: TRIPTORELIN PAMOATE
     Dosage: 22.5 MG, 1X6 MONTHS
     Route: 030
     Dates: start: 20210510
  2. TRIPTORELIN PAMOATE [Suspect]
     Active Substance: TRIPTORELIN PAMOATE
     Dosage: 22.5 MG, 1X6 MONTHS
     Route: 030
     Dates: start: 20240307
  3. TRIPTORELIN PAMOATE [Suspect]
     Active Substance: TRIPTORELIN PAMOATE
     Dosage: 22.5MG, 1X6 MONTHS
     Route: 030
     Dates: start: 20231106

REACTIONS (1)
  - Death [Fatal]
